FAERS Safety Report 15164805 (Version 2)
Quarter: 2020Q2

REPORT INFORMATION
  Report Type: Spontaneous
  Country: US (occurrence: US)
  Receive Date: 20180719
  Receipt Date: 20200625
  Transmission Date: 20200713
  Serious: No
  Sender: FDA-Public Use
  Company Number: US-SA-2018SA196331

PATIENT

DRUGS (1)
  1. AUBAGIO [Suspect]
     Active Substance: TERIFLUNOMIDE
     Indication: MULTIPLE SCLEROSIS
     Dosage: 14 MG, QD
     Route: 048
     Dates: start: 20171205

REACTIONS (3)
  - Blood glucose fluctuation [Unknown]
  - Cystitis [Not Recovered/Not Resolved]
  - Rehabilitation therapy [Unknown]

NARRATIVE: CASE EVENT DATE: 20180512
